FAERS Safety Report 5703290-8 (Version None)
Quarter: 2008Q2

REPORT INFORMATION
  Report Type: 
  Country: None (occurrence: None)
  Receive Date: 20080411
  Receipt Date: 20080331
  Transmission Date: 20081010
  Serious: Yes (Hospitalization, Other)
  Sender: FDA-Public Use
  Company Number: US-PFIZER INC-2008012866

PATIENT
  Sex: Female
  Weight: 86 kg

DRUGS (9)
  1. CHANTIX [Suspect]
     Indication: SMOKING CESSATION THERAPY
     Route: 048
     Dates: start: 20070101, end: 20080101
  2. SYNTHROID [Concomitant]
  3. CYMBALTA [Concomitant]
  4. NEXIUM [Concomitant]
  5. ZANTAC [Concomitant]
  6. CELEBREX [Concomitant]
  7. NEURONTIN [Concomitant]
  8. XANAX [Concomitant]
  9. ADVAIR HFA [Concomitant]

REACTIONS (4)
  - BLOOD PRESSURE DECREASED [None]
  - LUNG DISORDER [None]
  - NEPHROLITHIASIS [None]
  - OXYGEN SATURATION DECREASED [None]
